FAERS Safety Report 7590765-2 (Version None)
Quarter: 2011Q3

REPORT INFORMATION
  Report Type: 
  Country: None (occurrence: None)
  Receive Date: 20110705
  Receipt Date: 20110621
  Transmission Date: 20111222
  Serious: Yes (Hospitalization, Other)
  Sender: FDA-Public Use
  Company Number: PHHY2011JP29330

PATIENT
  Sex: Male
  Weight: 64 kg

DRUGS (5)
  1. NICORANDIL [Concomitant]
     Dosage: 15 MG, UNK
     Route: 048
     Dates: start: 20031113
  2. SIGMART [Concomitant]
     Indication: ANGINA PECTORIS
     Dosage: 15 MG, UNK
     Route: 048
     Dates: start: 20030313
  3. RASILEZ [Suspect]
     Indication: HYPERTENSION
     Dosage: 150 MG, UNK
     Route: 048
     Dates: start: 20101118, end: 20110401
  4. LASIX [Concomitant]
     Indication: OEDEMA
     Dosage: UNK
     Route: 048
     Dates: start: 20110203, end: 20110401
  5. ADALAT [Concomitant]
     Indication: HYPERTENSION
     Dosage: 20 MG, UNK
     Route: 048
     Dates: start: 20011128, end: 20110401

REACTIONS (6)
  - GENERALISED OEDEMA [None]
  - BRAIN NATRIURETIC PEPTIDE INCREASED [None]
  - ATONIC URINARY BLADDER [None]
  - CARDIAC FAILURE [None]
  - HYDRONEPHROSIS [None]
  - BLOOD CREATININE INCREASED [None]
